FAERS Safety Report 8640540 (Version 2)
Quarter: 2013Q2

REPORT INFORMATION
  Report Type: Report from Study
  Country: US (occurrence: US)
  Receive Date: 20120628
  Receipt Date: 20130627
  Transmission Date: 20140414
  Serious: Yes (Other)
  Sender: FDA-Public Use
  Company Number: US-MYLANLABS-2011S1025933

PATIENT
  Age: 20 Year
  Sex: Male

DRUGS (6)
  1. CLOZAPINE TABLETS [Suspect]
     Route: 048
     Dates: end: 20111220
  2. CLOZAPINE TABLETS [Suspect]
     Route: 048
     Dates: end: 20111220
  3. CLOZAPINE TABLETS [Suspect]
     Route: 048
     Dates: end: 20111220
  4. SYNTHROID [Concomitant]
  5. DEPAKOTE [Concomitant]
  6. GUANFACINE [Concomitant]

REACTIONS (1)
  - Granulocytopenia [Not Recovered/Not Resolved]
